FAERS Safety Report 5459108-4 (Version None)
Quarter: 2007Q3

REPORT INFORMATION
  Report Type: 
  Country: None (occurrence: None)
  Receive Date: 20070919
  Receipt Date: 20070724
  Transmission Date: 20080115
  Serious: Yes (Other)
  Sender: FDA-Public Use
  Company Number: US-PURDUE-USA_2007_0029001

PATIENT
  Age: 38 Year
  Sex: Male
  Weight: 73 kg

DRUGS (5)
  1. OXYCONTIN [Suspect]
     Indication: BACK PAIN
     Dosage: 10 MG, BID
     Dates: start: 19971219, end: 19980119
  2. ZYPREXA [Concomitant]
     Dosage: 5 MG, UNK
  3. PROZAC [Concomitant]
     Dosage: 20 MG, UNK
  4. BUSPAR [Concomitant]
     Dosage: 15 MG, UNK
  5. NITROGLYCERIN [Concomitant]
     Dosage: UNK, PRN

REACTIONS (7)
  - ANXIETY [None]
  - DEPRESSION [None]
  - GENERAL PHYSICAL HEALTH DETERIORATION [None]
  - HALLUCINATION, AUDITORY [None]
  - MENTAL DISORDER [None]
  - NIGHTMARE [None]
  - SUICIDAL IDEATION [None]
